FAERS Safety Report 21554754 (Version 2)
Quarter: 2022Q4

REPORT INFORMATION
  Report Type: Spontaneous
  Country: US (occurrence: US)
  Receive Date: 20221104
  Receipt Date: 20221222
  Transmission Date: 20230113
  Serious: No
  Sender: FDA-Public Use
  Company Number: US-PFIZER INC-202201271494

PATIENT
  Age: 59 Year
  Sex: Male
  Weight: 86.18 kg

DRUGS (6)
  1. PAXLOVID [Suspect]
     Active Substance: NIRMATRELVIR\RITONAVIR
     Indication: COVID-19 treatment
     Dosage: TAKE 3 TABLETS TOGETHER, 250MG AND 1 100MG, TWICE A DAY
  2. HYDROCODONE [Suspect]
     Active Substance: HYDROCODONE
     Dosage: TAKE 10MG HYDROCODONE WITH 325MG OF TYLENOL IN THE HYDROCODONE TABLET, TAKES 2 TABLETS AT A TIME
  3. HYDROCODONE [Suspect]
     Active Substance: HYDROCODONE
     Dosage: TAKES 2 OXYCODONE WITH THE 2 HYDROCODONE FOR 1 DOSE
  4. OXYCODONE [Suspect]
     Active Substance: OXYCODONE
     Dosage: TAKES 2 OXYCODONE WITH THE 2 HYDROCODONE FOR 1 DOSE
  5. LAGEVRIO [Concomitant]
     Active Substance: MOLNUPIRAVIR
     Dosage: 200 MG
  6. TYLENOL [Concomitant]
     Active Substance: ACETAMINOPHEN
     Dosage: TAKE 10MG HYDROCODONE WITH 325MG OF TYLENOL IN THE HYDROCODONE TABLET, TAKES 2 TABLETS AT A TIME

REACTIONS (1)
  - No adverse event [Unknown]
